FAERS Safety Report 11392333 (Version 1)
Quarter: 2015Q3

REPORT INFORMATION
  Report Type: Spontaneous
  Country: SG (occurrence: None)
  Receive Date: 20150814
  Receipt Date: 20150814
  Transmission Date: 20151125
  Serious: Yes (Other)
  Sender: FDA-Public Use
  Company Number: 201R1-101115

PATIENT
  Age: 59 Year
  Sex: Male

DRUGS (3)
  1. CIPROFLOXACIN (CIPROFLOXACIN) [Suspect]
     Active Substance: CIPROFLOXACIN
     Indication: ABDOMINAL INFECTION
     Route: 048
  2. CIPROFLOXACIN (CIPROFLOXACIN) [Suspect]
     Active Substance: CIPROFLOXACIN
     Indication: ABDOMINAL INFECTION
     Route: 051
  3. METRONIDAZOLE (METRONIDAZOLE) UNKNOWN [Suspect]
     Active Substance: METRONIDAZOLE
     Indication: ABDOMINAL INFECTION

REACTIONS (2)
  - Toxicity to various agents [None]
  - Cerebellar syndrome [None]
